FAERS Safety Report 17776626 (Version 2)
Quarter: 2020Q2

REPORT INFORMATION
  Report Type: Spontaneous
  Country: IN (occurrence: IN)
  Receive Date: 20200513
  Receipt Date: 20200601
  Transmission Date: 20200714
  Serious: Yes (Death, Life-Threatening, Hospitalization, Other)
  Sender: FDA-Public Use
  Company Number: IN-ACCORD-181473

PATIENT
  Age: 57 Year
  Sex: Male

DRUGS (4)
  1. PREDNISOLONE. [Suspect]
     Active Substance: PREDNISOLONE
     Indication: IMMUNOSUPPRESSANT DRUG THERAPY
     Dosage: ADMINISTERED THROUGH NASO-GASTRIC TUBE
     Route: 048
     Dates: start: 2007, end: 2018
  2. TACROLIMUS. [Suspect]
     Active Substance: TACROLIMUS
     Indication: IMMUNOSUPPRESSANT DRUG THERAPY
     Dates: start: 2007, end: 20180917
  3. MYCOPHENOLIC ACID. [Suspect]
     Active Substance: MYCOPHENOLIC ACID
     Indication: IMMUNOSUPPRESSANT DRUG THERAPY
     Dates: start: 2007, end: 20180917
  4. INSULIN [Concomitant]
     Active Substance: INSULIN NOS

REACTIONS (11)
  - Acute kidney injury [Fatal]
  - Cryptococcosis [Fatal]
  - Infection [Fatal]
  - Flavobacterium infection [Fatal]
  - Meningitis [Fatal]
  - Status epilepticus [Fatal]
  - Shock [Fatal]
  - Pneumonia [Fatal]
  - Septic shock [Fatal]
  - Acinetobacter infection [Fatal]
  - Superinfection bacterial [Fatal]
